FAERS Safety Report 5278404-7 (Version None)
Quarter: 2007Q1

REPORT INFORMATION
  Report Type: 
  Country: None (occurrence: None)
  Receive Date: 20070322
  Receipt Date: 20070309
  Transmission Date: 20070707
  Serious: Yes (Hospitalization)
  Sender: FDA-Public Use
  Company Number: CERZ-11556

PATIENT
  Age: 43 Year
  Sex: Male
  Weight: 122.4712 kg

DRUGS (3)
  1. CEREZYME [Suspect]
     Indication: GAUCHER'S DISEASE
     Dosage: 3800 UNITS Q2WKS IV
     Route: 042
  2. METFORMIN HCL [Concomitant]
  3. UNSPECIFIED BLOOD PRESSURE MEDICATIONS [Concomitant]

REACTIONS (5)
  - ANXIETY [None]
  - BLOOD PRESSURE ABNORMAL [None]
  - FATIGUE [None]
  - FEELING ABNORMAL [None]
  - NAUSEA [None]
